FAERS Safety Report 13853939 (Version 16)
Quarter: 2022Q1

REPORT INFORMATION
  Report Type: Report from Study
  Country: CA (occurrence: CA)
  Receive Date: 20170810
  Receipt Date: 20220122
  Transmission Date: 20220423
  Serious: Yes (Hospitalization, Other)
  Sender: FDA-Public Use
  Company Number: PHHY2017CA101874

PATIENT
  Age: 53 Year
  Sex: Male

DRUGS (6)
  1. SANDOSTATIN LAR DEPOT [Suspect]
     Active Substance: OCTREOTIDE ACETATE
     Indication: Carcinoid tumour
     Dosage: 30 MG, Q4W (EVERY 4 WEEKS)
     Route: 030
     Dates: start: 20170627
  2. SANDOSTATIN LAR DEPOT [Suspect]
     Active Substance: OCTREOTIDE ACETATE
  3. SANDOSTATIN LAR DEPOT [Suspect]
     Active Substance: OCTREOTIDE ACETATE
  4. OCTREOTIDE [Concomitant]
     Active Substance: OCTREOTIDE
     Indication: Carcinoid tumour
     Dosage: UNK UNK, TID X (2-3 WEEKS)
     Route: 058
  5. MICARDIS [Concomitant]
     Active Substance: TELMISARTAN
     Indication: Blood cholesterol increased
     Dosage: UNK
     Route: 048
  6. CORTISONE [Concomitant]
     Active Substance: CORTISONE
     Indication: Product used for unknown indication
     Dosage: UNK
     Route: 065
     Dates: start: 20210422

REACTIONS (15)
  - Infection [Unknown]
  - Retinal detachment [Unknown]
  - Hernia [Unknown]
  - Blood pressure increased [Unknown]
  - Blood bilirubin increased [Unknown]
  - Lymphatic disorder [Unknown]
  - Hypertension [Unknown]
  - Body temperature decreased [Unknown]
  - Post procedural infection [Recovering/Resolving]
  - Osteoarthritis [Unknown]
  - Hyperlipidaemia [Unknown]
  - Arthritis [Unknown]
  - COVID-19 [Unknown]
  - Pain [Unknown]
  - Heart rate increased [Unknown]

NARRATIVE: CASE EVENT DATE: 20170717
